FAERS Safety Report 4336689-5 (Version None)
Quarter: 2004Q2

REPORT INFORMATION
  Report Type: 
  Country: None (occurrence: None)
  Receive Date: 20040408
  Receipt Date: 20040324
  Transmission Date: 20050107
  Serious: Yes (Hospitalization)
  Sender: FDA-Public Use
  Company Number: 2004IM000482

PATIENT
  Sex: 0

DRUGS (1)
  1. INFERGEN [Suspect]
     Indication: HEPATITIS C
     Dosage: 15 UG;QD;SUBCUTANEOUS
     Route: 058

REACTIONS (2)
  - HEPATIC ENCEPHALOPATHY [None]
  - OESOPHAGEAL HAEMORRHAGE [None]
